FAERS Safety Report 6918184-X (Version None)
Quarter: 2010Q3

REPORT INFORMATION
  Report Type: 
  Country: None (occurrence: None)
  Receive Date: 20100806
  Receipt Date: 20100719
  Transmission Date: 20110219
  Serious: Yes (Other)
  Sender: FDA-Public Use
  Company Number: US-ACCORD-005769

PATIENT
  Age: 67 Year
  Sex: Female

DRUGS (1)
  1. MYCOPHENOLATE MOFETIL [Suspect]

REACTIONS (2)
  - ALVEOLAR PROTEINOSIS [None]
  - OFF LABEL USE [None]
